FAERS Safety Report 4537199-2 (Version None)
Quarter: 2004Q4

REPORT INFORMATION
  Report Type: 
  Country: None (occurrence: None)
  Receive Date: 20041223
  Receipt Date: 20040827
  Transmission Date: 20050328
  Serious: Yes (Other)
  Sender: FDA-Public Use
  Company Number: PHBS2004SK11429

PATIENT
  Age: 51 Year
  Sex: Female
  Weight: 65 kg

DRUGS (5)
  1. MIACALCIN [Suspect]
     Dosage: 1 DF, QD
     Route: 045
     Dates: start: 20040729, end: 20040803
  2. XALATAN [Concomitant]
  3. TEBOKAN [Concomitant]
  4. SYMBICORT [Concomitant]
  5. ZYRTEC [Concomitant]

REACTIONS (10)
  - ARTHRALGIA [None]
  - BONE PAIN [None]
  - DIZZINESS [None]
  - FATIGUE [None]
  - MUCOSAL INFLAMMATION [None]
  - MYALGIA [None]
  - NASAL CONGESTION [None]
  - NAUSEA [None]
  - ORBITAL OEDEMA [None]
  - OROPHARYNGEAL SWELLING [None]
